FAERS Safety Report 17493064 (Version 1)
Quarter: 2020Q1

REPORT INFORMATION
  Report Type: Report from Study
  Country: DE (occurrence: DE)
  Receive Date: 20200303
  Receipt Date: 20200303
  Transmission Date: 20200409
  Serious: Yes (Life-Threatening)
  Sender: FDA-Public Use
  Company Number: DE-PFIZER INC-2020092830

PATIENT

DRUGS (3)
  1. PENTOSTATIN. [Suspect]
     Active Substance: PENTOSTATIN
     Indication: CHRONIC LYMPHOCYTIC LEUKAEMIA
     Dosage: 4 MG/M2 (INTRAVENOUS PUSH ONCE EVERY WEEK FOR THE FIRST 3 WEEKS)
     Route: 042
  2. PENTOSTATIN. [Suspect]
     Active Substance: PENTOSTATIN
     Dosage: 4 MG/M2 (EVERY OTHER WEEK FOR 6 WEEKS)
     Route: 042
  3. PENTOSTATIN. [Suspect]
     Active Substance: PENTOSTATIN
     Dosage: 4 MG/M2, MONTHLY (ONCE A MONTH FOR 6 MONTHS)
     Route: 042

REACTIONS (1)
  - Pneumonia bacterial [Recovered/Resolved]
